FAERS Safety Report 25463495 (Version 1)
Quarter: 2025Q2

REPORT INFORMATION
  Report Type: Spontaneous
  Country: US (occurrence: US)
  Receive Date: 20250620
  Receipt Date: 20250620
  Transmission Date: 20250716
  Serious: No
  Sender: BIOMARIN
  Company Number: US-BIOMARINAP-US-2025-166507

PATIENT

DRUGS (4)
  1. VOXZOGO [Suspect]
     Active Substance: VOSORITIDE
     Indication: Osteochondrodysplasia
     Dosage: 0.2 MILLIGRAM, QD
     Route: 058
  2. VOXZOGO [Suspect]
     Active Substance: VOSORITIDE
     Indication: Bone disorder
  3. Vitamin d2 + k1 [Concomitant]
     Indication: Product used for unknown indication
  4. Vitamin d2 + k1 [Concomitant]
     Indication: Product used for unknown indication

REACTIONS (2)
  - Scratch [Unknown]
  - Device deployment issue [Unknown]

NARRATIVE: CASE EVENT DATE: 20250608
